FAERS Safety Report 4466392-2 (Version None)
Quarter: 2004Q3

REPORT INFORMATION
  Report Type: 
  Country: None (occurrence: None)
  Receive Date: 20040930
  Receipt Date: 20040914
  Transmission Date: 20050211
  Serious: Yes (Death, Hospitalization)
  Sender: FDA-Public Use
  Company Number: A03200402547

PATIENT
  Age: 79 Year
  Sex: Male
  Weight: 77.1115 kg

DRUGS (6)
  1. PLAVIX [Suspect]
     Indication: TRANSIENT ISCHAEMIC ATTACK
     Dosage: 300 MG ONCE - ORAL
     Route: 048
     Dates: start: 20040608, end: 20040608
  2. ACETYLSALICYLIC ACID [Concomitant]
  3. DILTIAZEM HYDROCHLORIDE [Concomitant]
  4. METFORMIN HCL [Concomitant]
  5. TERAZOSIN HYDROCHLORIDE [Concomitant]
  6. RAMIPRIL [Concomitant]

REACTIONS (3)
  - HYPERSENSITIVITY [None]
  - PALPITATIONS [None]
  - RESTLESSNESS [None]
